FAERS Safety Report 14761362 (Version 2)
Quarter: 2018Q2

REPORT INFORMATION
  Report Type: Report from Study
  Country: CA (occurrence: CA)
  Receive Date: 20180415
  Receipt Date: 20180427
  Transmission Date: 20180711
  Serious: Yes (Other)
  Sender: FDA-Public Use
  Company Number: PHHY2018CA062999

PATIENT
  Age: 50 Year
  Sex: Female

DRUGS (2)
  1. GILENYA [Suspect]
     Active Substance: FINGOLIMOD HYDROCHLORIDE
     Indication: RELAPSING-REMITTING MULTIPLE SCLEROSIS
     Dosage: 0.5 MG, QD
     Route: 048
     Dates: start: 20180406
  2. PERINDOPRIL [Concomitant]
     Active Substance: PERINDOPRIL
     Indication: PRODUCT USED FOR UNKNOWN INDICATION
     Dosage: 4 MG, QD
     Route: 065

REACTIONS (5)
  - Arrhythmia [Recovered/Resolved]
  - Supraventricular tachycardia [Recovered/Resolved]
  - Sinus tachycardia [Recovered/Resolved]
  - Atrioventricular block first degree [Recovered/Resolved]
  - Electrocardiogram QRS complex prolonged [Recovered/Resolved]

NARRATIVE: CASE EVENT DATE: 20180406
